FAERS Safety Report 4345719-6 (Version None)
Quarter: 2004Q2

REPORT INFORMATION
  Report Type: 
  Country: None (occurrence: None)
  Receive Date: 20040421
  Receipt Date: 20040408
  Transmission Date: 20050107
  Serious: Yes (Hospitalization)
  Sender: FDA-Public Use
  Company Number: 2004023615

PATIENT
  Age: 75 Year
  Sex: Male
  Weight: 79.3795 kg

DRUGS (2)
  1. NORVASC [Suspect]
     Indication: BRADYCARDIA
     Dosage: 10 MG (DAILY) ORAL
     Route: 048
     Dates: start: 20030518
  2. VALSARTAN [Suspect]
     Indication: HYPERTENSION
     Dosage: 160 MG (DAILY) ORAL
     Route: 048
     Dates: start: 20030518

REACTIONS (13)
  - AMNESIA [None]
  - BALANCE DISORDER [None]
  - BENIGN PROSTATIC HYPERPLASIA [None]
  - BLOOD POTASSIUM DECREASED [None]
  - BLOOD SODIUM DECREASED [None]
  - CONDITION AGGRAVATED [None]
  - CONFUSIONAL STATE [None]
  - DISTURBANCE IN ATTENTION [None]
  - DRUG INTERACTION [None]
  - MEDICATION ERROR [None]
  - MENTAL IMPAIRMENT [None]
  - MYALGIA [None]
  - OEDEMA PERIPHERAL [None]
